FAERS Safety Report 8301510-7 (Version None)
Quarter: 2012Q2

REPORT INFORMATION
  Report Type: 
  Country: None (occurrence: None)
  Receive Date: 20120420
  Receipt Date: 20120419
  Transmission Date: 20120825
  Serious: Yes (Death, Hospitalization)
  Sender: FDA-Public Use
  Company Number: PHFR2012GB001740

PATIENT
  Sex: Female

DRUGS (4)
  1. DIAZEPAM [Concomitant]
  2. SULPIRIDE [Concomitant]
     Dates: start: 20111201
  3. CLOMIPRAMINE HCL [Concomitant]
     Dates: start: 20111201
  4. CLOZARIL [Suspect]
     Indication: SCHIZOPHRENIA
     Route: 048
     Dates: start: 20030815

REACTIONS (1)
  - METASTATIC NEOPLASM [None]
